FAERS Safety Report 13414661 (Version 5)
Quarter: 2017Q2

REPORT INFORMATION
  Report Type: Spontaneous
  Country: ES (occurrence: ES)
  Receive Date: 20170406
  Receipt Date: 20170608
  Transmission Date: 20170830
  Serious: Yes (Other)
  Sender: FDA-Public Use
  Company Number: ES-ASTELLAS-2017US012670

PATIENT
  Age: 64 Year
  Sex: Male

DRUGS (6)
  1. AVIDART [Suspect]
     Active Substance: DUTASTERIDE
     Dosage: UNK UNK, UNKNOWN FREQ.
     Route: 065
  2. PLANTAGO OVATA [Concomitant]
     Active Substance: PLANTAGO OVATA LEAF
     Indication: PRODUCT USED FOR UNKNOWN INDICATION
     Dosage: UNK UNK, UNKNOWN FREQ.
     Route: 065
  3. AVIDART [Suspect]
     Active Substance: DUTASTERIDE
     Indication: PRODUCT USED FOR UNKNOWN INDICATION
     Dosage: UNK UNK, UNKNOWN FREQ.
     Route: 065
  4. TAMSULOSIN [Concomitant]
     Active Substance: TAMSULOSIN
     Indication: PRODUCT USED FOR UNKNOWN INDICATION
     Dosage: UNK UNK, UNKNOWN FREQ.
     Route: 065
  5. LOSARTAN. [Concomitant]
     Active Substance: LOSARTAN
     Indication: PRODUCT USED FOR UNKNOWN INDICATION
     Dosage: UNK UNK, UNKNOWN FREQ.
     Route: 065
  6. BETMIGA [Suspect]
     Active Substance: MIRABEGRON
     Indication: HYPERTONIC BLADDER
     Route: 048
     Dates: start: 201608, end: 20170317

REACTIONS (21)
  - Blood pressure abnormal [Unknown]
  - Fatigue [Not Recovered/Not Resolved]
  - Myalgia [Recovering/Resolving]
  - Somnolence [Unknown]
  - Chills [Recovering/Resolving]
  - Balance disorder [Not Recovered/Not Resolved]
  - Constipation [Recovering/Resolving]
  - Palpitations [Recovering/Resolving]
  - Gastrointestinal pain [Recovering/Resolving]
  - Dry mouth [Not Recovered/Not Resolved]
  - Dizziness [Not Recovered/Not Resolved]
  - Flushing [Recovering/Resolving]
  - Vertigo [Not Recovered/Not Resolved]
  - Headache [Not Recovered/Not Resolved]
  - Leukoencephalopathy [Unknown]
  - Dry throat [Not Recovered/Not Resolved]
  - Nervousness [Unknown]
  - Nerve degeneration [Unknown]
  - Pain [Not Recovered/Not Resolved]
  - Malaise [Recovering/Resolving]
  - Drug effect incomplete [Unknown]

NARRATIVE: CASE EVENT DATE: 201705
